FAERS Safety Report 14186394 (Version 1)
Quarter: 2017Q4

REPORT INFORMATION
  Report Type: Report from Study
  Country: CA (occurrence: CA)
  Receive Date: 20171114
  Receipt Date: 20171114
  Transmission Date: 20180321
  Serious: Yes (Death, Hospitalization, Other)
  Sender: FDA-Public Use
  Company Number: CA-BAYER-2017-190465

PATIENT
  Age: 87 Year
  Sex: Male

DRUGS (5)
  1. LASIX [Suspect]
     Active Substance: FUROSEMIDE
     Indication: HYPERTENSION
     Dosage: 20 MG, QD
     Dates: start: 201710
  2. ADEMPAS [Suspect]
     Active Substance: RIOCIGUAT
     Indication: PULMONARY ARTERIAL HYPERTENSION
     Dosage: UNK
     Dates: start: 20170717
  3. ADEMPAS [Suspect]
     Active Substance: RIOCIGUAT
     Indication: PULMONARY ARTERIAL HYPERTENSION
     Dosage: 2.0 MG, TID
     Route: 048
  4. LASIX [Suspect]
     Active Substance: FUROSEMIDE
     Indication: HYPERTENSION
     Dosage: UNK
     Dates: end: 201710
  5. RAMIPRIL. [Concomitant]
     Active Substance: RAMIPRIL
     Dosage: UNK
     Dates: end: 201710

REACTIONS (11)
  - Cardiac failure congestive [Unknown]
  - Hypersomnia [Unknown]
  - Renal disorder [Unknown]
  - Blood creatinine increased [Unknown]
  - Death [Fatal]
  - Dermatitis contact [Unknown]
  - Lethargy [Unknown]
  - Erythema [Unknown]
  - Dyspnoea [None]
  - Blood pressure diastolic decreased [Unknown]
  - Poor quality sleep [None]

NARRATIVE: CASE EVENT DATE: 20171002
